FAERS Safety Report 6742519-4 (Version None)
Quarter: 2010Q2

REPORT INFORMATION
  Report Type: 
  Country: None (occurrence: None)
  Receive Date: 20100524
  Receipt Date: 20100202
  Transmission Date: 20101027
  Serious: Yes (Other)
  Sender: FDA-Public Use
  Company Number: DSA_42554_2010

PATIENT

DRUGS (2)
  1. APLENZIN [Suspect]
     Indication: DRUG USE FOR UNKNOWN INDICATION
     Dosage: (522 UNITS UNSPECIFIED)
  2. WELLBUTRIN XL [Concomitant]

REACTIONS (1)
  - CONVULSION [None]
